FAERS Safety Report 15799783 (Version 2)
Quarter: 2019Q1

REPORT INFORMATION
  Report Type: Spontaneous
  Country: IT (occurrence: IT)
  Receive Date: 20190108
  Receipt Date: 20190115
  Transmission Date: 20190417
  Serious: Yes (Other)
  Sender: FDA-Public Use
  Company Number: IT-PFIZER INC-2018534981

PATIENT
  Age: 82 Year
  Sex: Female

DRUGS (1)
  1. XANAX [Suspect]
     Active Substance: ALPRAZOLAM
     Indication: ANXIETY
     Dosage: UNK (FOR 30 YEARS)

REACTIONS (6)
  - Product taste abnormal [Unknown]
  - Malaise [Unknown]
  - Poor quality product administered [Unknown]
  - Cardiac valve disease [Unknown]
  - Oesophageal disorder [Unknown]
  - Product odour abnormal [Unknown]
